FAERS Safety Report 4432402-1 (Version None)
Quarter: 2004Q3

REPORT INFORMATION
  Report Type: 
  Country: None (occurrence: None)
  Receive Date: 20040818
  Receipt Date: 20040802
  Transmission Date: 20050211
  Serious: Yes (Death, Hospitalization)
  Sender: FDA-Public Use
  Company Number: WAES 0408USA00499

PATIENT
  Age: 83 Year
  Sex: Female

DRUGS (9)
  1. COZAAR [Suspect]
     Indication: HYPERTENSION
     Dosage: 100 MG/DAILY PO
     Route: 048
     Dates: start: 20010105, end: 20031113
  2. 8-HOUR BAYER [Concomitant]
  3. BUFFERIN [Concomitant]
  4. CEROCRAL [Concomitant]
  5. NITRODERM [Concomitant]
  6. NORVASC [Concomitant]
  7. PANALDINE [Concomitant]
  8. SIGMART [Concomitant]
  9. ZYLORIC [Concomitant]

REACTIONS (5)
  - ANGINA PECTORIS [None]
  - CORONARY ARTERY STENOSIS [None]
  - FALL [None]
  - FEMORAL NECK FRACTURE [None]
  - MYOCARDIAL INFARCTION [None]
